FAERS Safety Report 5951282-6 (Version None)
Quarter: 2008Q4

REPORT INFORMATION
  Report Type: 
  Country: None (occurrence: None)
  Receive Date: 20081112
  Receipt Date: 20081112
  Transmission Date: 20090506
  Serious: Yes (Hospitalization, Other)
  Sender: FDA-Public Use
  Company Number: None

PATIENT
  Sex: Female
  Weight: 90.7194 kg

DRUGS (1)
  1. RISPERDAL [Suspect]
     Indication: PSYCHOTIC DISORDER
     Dosage: 1X DAY PO
     Route: 048
     Dates: start: 19950101, end: 20030101

REACTIONS (13)
  - ABNORMAL BEHAVIOUR [None]
  - DISORIENTATION [None]
  - DYSGRAPHIA [None]
  - DYSPHEMIA [None]
  - GRIP STRENGTH [None]
  - IMPULSIVE BEHAVIOUR [None]
  - MEMORY IMPAIRMENT [None]
  - PSYCHOTIC DISORDER [None]
  - ROAD TRAFFIC ACCIDENT [None]
  - SPEECH DISORDER [None]
  - SUICIDAL IDEATION [None]
  - THINKING ABNORMAL [None]
  - TREMOR [None]
